FAERS Safety Report 14576848 (Version 1)
Quarter: 2018Q1

REPORT INFORMATION
  Report Type: Spontaneous
  Country: US (occurrence: US)
  Receive Date: 20180225
  Receipt Date: 20180225
  Transmission Date: 20180509
  Serious: No
  Sender: FDA-Public Use
  Company Number: None

PATIENT
  Age: 2 Year
  Sex: Female
  Weight: 13.05 kg

DRUGS (4)
  1. TYLENOL [Concomitant]
     Active Substance: ACETAMINOPHEN
  2. FLINSTONES MV [Concomitant]
  3. MOTRIN [Concomitant]
     Active Substance: IBUPROFEN
  4. OSELTAMIVIR PHOSPHATE FOR ORAL SUSPENSION [Suspect]
     Active Substance: OSELTAMIVIR PHOSPHATE
     Indication: INFLUENZA
     Dosage: ?          QUANTITY:1 TEASPOON(S);?
     Route: 048
     Dates: start: 20180223, end: 20180224

REACTIONS (4)
  - Sleep disorder [None]
  - Screaming [None]
  - Middle insomnia [None]
  - Hallucination [None]

NARRATIVE: CASE EVENT DATE: 20180224
